FAERS Safety Report 23020140 (Version 1)
Quarter: 2023Q4

REPORT INFORMATION
  Report Type: Spontaneous
  Country: US (occurrence: US)
  Receive Date: 20231003
  Receipt Date: 20231003
  Transmission Date: 20240109
  Serious: Yes (Other)
  Sender: FDA-Public Use
  Company Number: US-CIPLA LTD.-2022US06650

PATIENT

DRUGS (3)
  1. ESCITALOPRAM [Suspect]
     Active Substance: ESCITALOPRAM OXALATE
     Indication: Anxiety
     Dosage: 10 MILLIGRAM, QD (IN THE EVENING)
     Route: 065
     Dates: start: 2020
  2. ESCITALOPRAM [Suspect]
     Active Substance: ESCITALOPRAM OXALATE
     Dosage: 5 MILLIGRAM, BID (IN MORNING AND EVENING)
     Route: 065
     Dates: start: 2021
  3. PEPCID S [Concomitant]
     Indication: Product used for unknown indication
     Dosage: UNK, ONCE IN A WHILE
     Route: 065

REACTIONS (17)
  - Diabetes mellitus [Recovered/Resolved]
  - General physical condition abnormal [Recovered/Resolved]
  - Inappropriate schedule of product administration [Unknown]
  - Fall [Recovered/Resolved]
  - Affect lability [Not Recovered/Not Resolved]
  - Hypometabolism [Not Recovered/Not Resolved]
  - Insomnia [Recovered/Resolved]
  - Ejaculation disorder [Recovered/Resolved]
  - Nausea [Recovered/Resolved]
  - Hyperhidrosis [Recovered/Resolved]
  - Fatigue [Recovered/Resolved]
  - Anorgasmia [Recovered/Resolved]
  - Somnolence [Recovered/Resolved]
  - Abnormal dreams [Recovered/Resolved]
  - Weight increased [Recovered/Resolved]
  - Libido decreased [Not Recovered/Not Resolved]
  - Weight decreased [Recovered/Resolved]

NARRATIVE: CASE EVENT DATE: 20210101
